FAERS Safety Report 18961861 (Version 2)
Quarter: 2021Q1

REPORT INFORMATION
  Report Type: Report from Study
  Country: US (occurrence: US)
  Receive Date: 20210302
  Receipt Date: 20210326
  Transmission Date: 20210420
  Serious: Yes (Hospitalization)
  Sender: FDA-Public Use
  Company Number: US-BAXTER-2021BAX003845

PATIENT
  Age: 13 Year
  Sex: Female
  Weight: 66.4 kg

DRUGS (14)
  1. CYCLOPHOSPHAMIDE FOR INJECTION, USP [Suspect]
     Active Substance: CYCLOPHOSPHAMIDE
     Indication: B PRECURSOR TYPE ACUTE LEUKAEMIA
     Dosage: FIRST DOSE, CD1,29
     Route: 042
     Dates: start: 20201124
  2. CYCLOPHOSPHAMIDE FOR INJECTION, USP [Suspect]
     Active Substance: CYCLOPHOSPHAMIDE
     Dosage: LAST DOSE PRIOR TO THE SAES
     Route: 042
     Dates: start: 20210126, end: 20210126
  3. INCB018424 (RUXOLITINIB) [Suspect]
     Active Substance: RUXOLITINIB
     Dosage: FORM OF ADMIN: TABLET, LAST DOSE PRIOR TO THE SAES
     Route: 048
     Dates: start: 20210207, end: 20210207
  4. INCB018424 (RUXOLITINIB) [Suspect]
     Active Substance: RUXOLITINIB
     Indication: B PRECURSOR TYPE ACUTE LEUKAEMIA
     Dosage: FIRST DOSE, FORM OF ADMIN: TABLET, CD1?14, 29?41
     Route: 048
     Dates: start: 20201124, end: 20210216
  5. CYTARABINE. [Suspect]
     Active Substance: CYTARABINE
     Dosage: LAST DOSE PRIOR TO THE SAES
     Route: 042
     Dates: start: 20210205, end: 20210205
  6. VINCRISTINE [Suspect]
     Active Substance: VINCRISTINE
     Indication: B PRECURSOR TYPE ACUTE LEUKAEMIA
     Dosage: FIRST DOSE, (CD15,22)
     Route: 042
     Dates: start: 20201208
  7. CYTARABINE. [Suspect]
     Active Substance: CYTARABINE
     Indication: B PRECURSOR TYPE ACUTE LEUKAEMIA
     Dosage: FIRST DOSE, (CD1?4,8?11,29?32,36?39)
     Route: 042
     Dates: start: 20201124
  8. PEGASPARGASE [Suspect]
     Active Substance: PEGASPARGASE
     Indication: B PRECURSOR TYPE ACUTE LEUKAEMIA
     Dosage: 4425 UNITS, (CD15), FIRST DOSE AND LAST DOSE PRIOR TO THE SAES
     Route: 042
     Dates: start: 20201208, end: 20201208
  9. MERCAPTOPURINE. [Suspect]
     Active Substance: MERCAPTOPURINE
     Indication: B PRECURSOR TYPE ACUTE LEUKAEMIA
     Dosage: FIRST DOSE, FORM OF ADMIN: TABLET, (CD1?14, 29?41)
     Route: 048
     Dates: start: 20201124, end: 20210211
  10. MERCAPTOPURINE. [Suspect]
     Active Substance: MERCAPTOPURINE
     Dosage: FORM OF ADMIN: TABLET, LAST DOSE PRIOR TO THE SAES
     Route: 048
     Dates: start: 20210207, end: 20210207
  11. VINCRISTINE [Suspect]
     Active Substance: VINCRISTINE
     Dosage: LAST DOSE PRIOR TO THE SAE OF PANCREATIC PSEUDOCYST GRADE 3
     Route: 042
     Dates: start: 20210209, end: 20210209
  12. METHOTREXATE. [Suspect]
     Active Substance: METHOTREXATE
     Dosage: LAST DOSE PRIOR TO THE SAES
     Route: 037
     Dates: start: 20201215, end: 20201215
  13. VINCRISTINE [Suspect]
     Active Substance: VINCRISTINE
     Dosage: LAST DOSE PRIOR TO THE SAE OF ABDOMINAL PAIN GRADE 3
     Route: 042
     Dates: start: 20201215, end: 20201215
  14. METHOTREXATE. [Suspect]
     Active Substance: METHOTREXATE
     Indication: B PRECURSOR TYPE ACUTE LEUKAEMIA
     Dosage: FIRST DOSE, (CD1,8,15,22)
     Route: 037
     Dates: start: 20201125

REACTIONS (2)
  - Pancreatic pseudocyst [Not Recovered/Not Resolved]
  - Abdominal pain [Recovered/Resolved]

NARRATIVE: CASE EVENT DATE: 20210207
